FAERS Safety Report 9087952 (Version 1)
Quarter: 2013Q1

REPORT INFORMATION
  Report Type: Spontaneous
  Country: US (occurrence: US)
  Receive Date: 20130131
  Receipt Date: 20130131
  Transmission Date: 20140127
  Serious: No
  Sender: FDA-Public Use
  Company Number: US-PFIZER INC-2013036555

PATIENT
  Sex: Female

DRUGS (6)
  1. IBUPROFEN [Suspect]
     Indication: PAIN
     Dosage: UNK
  2. IBUPROFEN [Suspect]
     Indication: DISCOMFORT
  3. TYLENOL [Suspect]
     Indication: PAIN
     Dosage: UNK
  4. TYLENOL [Suspect]
     Indication: DISCOMFORT
  5. EXCEDRIN (ASPIRIN/CAFFEINE/PARACETAMOL) [Suspect]
     Indication: PAIN
     Dosage: UNK
  6. EXCEDRIN (ASPIRIN/CAFFEINE/PARACETAMOL) [Suspect]
     Indication: DISCOMFORT

REACTIONS (1)
  - Drug ineffective [Unknown]
